FAERS Safety Report 19376123 (Version 1)
Quarter: 2021Q2

REPORT INFORMATION
  Report Type: Spontaneous
  Country: NL (occurrence: NL)
  Receive Date: 20210605
  Receipt Date: 20210605
  Transmission Date: 20210717
  Serious: Yes (Hospitalization, Other)
  Sender: FDA-Public Use
  Company Number: NL-AUROBINDO-AUR-APL-2021-022268

PATIENT
  Age: 64 Year
  Sex: Male

DRUGS (4)
  1. CHLOROQUINE. [Interacting]
     Active Substance: CHLOROQUINE
     Dosage: 300 MILLIGRAM, TWO TIMES A DAY
     Route: 065
  2. REMDESIVIR. [Interacting]
     Active Substance: REMDESIVIR
     Indication: PRODUCT USED FOR UNKNOWN INDICATION
     Dosage: UNK
  3. CHLOROQUINE. [Interacting]
     Active Substance: CHLOROQUINE
     Indication: PRODUCT USED FOR UNKNOWN INDICATION
     Dosage: 600 MILLIGRAM (LOADING DOSE)
     Route: 065
  4. AMIODARONE [Suspect]
     Active Substance: AMIODARONE
     Indication: ATRIAL FIBRILLATION
     Dosage: 700 MILLIGRAM (ON DAY 18, 2ND DAY ATER INITIATION OF REMDESIVIR)
     Route: 065

REACTIONS (3)
  - Hepatotoxicity [Recovered/Resolved]
  - Drug interaction [Recovered/Resolved]
  - Drug-induced liver injury [Recovered/Resolved]
